FAERS Safety Report 7379903-4 (Version None)
Quarter: 2011Q1

REPORT INFORMATION
  Report Type: 
  Country: None (occurrence: None)
  Receive Date: 20110324
  Receipt Date: 20110324
  Transmission Date: 20110831
  Serious: Yes (Life-Threatening)
  Sender: FDA-Public Use
  Company Number: None

PATIENT
  Sex: Male
  Weight: 90.7194 kg

DRUGS (1)
  1. HALDOL [Suspect]
     Dosage: 0.5MG TWICE A DAY ID
     Dates: start: 20110102, end: 20110307

REACTIONS (8)
  - GAIT DISTURBANCE [None]
  - SOMNOLENCE [None]
  - DRUG INEFFECTIVE [None]
  - DYSARTHRIA [None]
  - PNEUMONIA [None]
  - AGITATION [None]
  - URINARY TRACT INFECTION [None]
  - STARING [None]
